FAERS Safety Report 17067722 (Version 4)
Quarter: 2019Q4

REPORT INFORMATION
  Report Type: Spontaneous
  Country: US (occurrence: US)
  Receive Date: 20191122
  Receipt Date: 20191223
  Transmission Date: 20200122
  Serious: Yes (Death)
  Sender: FDA-Public Use
  Company Number: US-ACTELION-A-US2019-198259

PATIENT
  Age: 76 Year
  Sex: Female
  Weight: 61.22 kg

DRUGS (3)
  1. REVATIO [Concomitant]
     Active Substance: SILDENAFIL CITRATE
     Dosage: 20 MG, TID
     Dates: start: 201805
  2. REMODULIN [Concomitant]
     Active Substance: TREPROSTINIL
     Dosage: 58 NG/KG, PER MIN
     Dates: start: 201901
  3. OPSUMIT [Suspect]
     Active Substance: MACITENTAN
     Indication: PULMONARY ARTERIAL HYPERTENSION
     Dosage: 10 MG, QD
     Route: 048
     Dates: start: 201805

REACTIONS (4)
  - Right ventricular failure [Fatal]
  - Pulmonary hypertension [Fatal]
  - Fluid retention [Fatal]
  - Cardiac failure congestive [Fatal]

NARRATIVE: CASE EVENT DATE: 20191115
